FAERS Safety Report 12338233 (Version 1)
Quarter: 2016Q2

REPORT INFORMATION
  Report Type: Spontaneous
  Country: US (occurrence: US)
  Receive Date: 20160505
  Receipt Date: 20160505
  Transmission Date: 20160815
  Serious: No
  Sender: FDA-Public Use
  Company Number: US-BEH-2015051983

PATIENT
  Age: 36 Year
  Sex: Female
  Weight: 109 kg

DRUGS (15)
  1. MELATONIN 3 MG [Concomitant]
  2. VITAMIN D3 1000 UNIT TABLET [Concomitant]
  3. TRAZODONE HCL 100 MG [Concomitant]
  4. CLARITIN 10 MG [Concomitant]
  5. PROPRANOLOL HCL 60 MG [Concomitant]
  6. FISH OIL 1000 MG [Concomitant]
  7. VITAMIN B [Concomitant]
     Active Substance: VITAMIN B
     Dosage: 1000 MCG
  8. WELLBUTRIN XL 300 MG TAB ER 24H [Concomitant]
  9. STIMATE [Suspect]
     Active Substance: DESMOPRESSIN ACETATE
     Indication: HAEMORRHAGE
     Route: 045
     Dates: start: 20150615, end: 20150619
  10. FLONASE ALLERGY RELIEF [Concomitant]
     Active Substance: FLUTICASONE PROPIONATE
  11. CYCLOBENZAPRINE HCL 10 MG [Concomitant]
  12. MULTIVITAMINS TABLET [Concomitant]
  13. NALOXONE HCL 1 MG/ML SYRINGE [Concomitant]
  14. MAGNESIUM OXIDE 500 MG TABLET [Concomitant]
  15. SUDAFED 12-HOUR 120 MG TABLET SA [Concomitant]
     Dosage: 12 HOUR , 120 MG TABLET SA

REACTIONS (2)
  - Headache [Unknown]
  - Vomiting [Unknown]

NARRATIVE: CASE EVENT DATE: 20150615
